FAERS Safety Report 7131132-5 (Version None)
Quarter: 2010Q4

REPORT INFORMATION
  Report Type: 
  Country: None (occurrence: None)
  Receive Date: 20101201
  Receipt Date: 20091102
  Transmission Date: 20110411
  Serious: Yes (Death)
  Sender: FDA-Public Use
  Company Number: US-SANOFI-AVENTIS-A03200905059

PATIENT
  Age: 58 Year
  Sex: Male

DRUGS (4)
  1. PLAVIX [Suspect]
     Indication: ANTIPHOSPHOLIPID ANTIBODIES POSITIVE
     Route: 048
     Dates: start: 20080701
  2. ALL OTHER THERAPEUTIC PRODUCTS [Suspect]
     Route: 065
     Dates: end: 20090101
  3. LEXAPRO [Concomitant]
     Dosage: UNK
  4. DARVOCET-N 100 [Concomitant]
     Dosage: UNK

REACTIONS (3)
  - ELECTROCARDIOGRAM ST SEGMENT ELEVATION [None]
  - INTENTIONAL OVERDOSE [None]
  - MYOCARDIAL INFARCTION [None]
